FAERS Safety Report 4363214-5 (Version None)
Quarter: 2004Q2

REPORT INFORMATION
  Report Type: 
  Country: None (occurrence: None)
  Receive Date: 20040518
  Receipt Date: 20040506
  Transmission Date: 20050107
  Serious: Yes (Death)
  Sender: FDA-Public Use
  Company Number: BE-JNJFOC-20040501494

PATIENT
  Age: 89 Year
  Sex: Female

DRUGS (1)
  1. PROPULSID [Suspect]
     Indication: IMPAIRED GASTRIC EMPTYING
     Dosage: 10 MG, 3 IN 1 DAY, ORAL
     Route: 048
     Dates: start: 20030506, end: 20030513

REACTIONS (1)
  - DEATH [None]
